FAERS Safety Report 17001334 (Version 9)
Quarter: 2022Q3

REPORT INFORMATION
  Report Type: Spontaneous
  Country: US (occurrence: US)
  Receive Date: 20191106
  Receipt Date: 20220826
  Transmission Date: 20221027
  Serious: Yes (Other)
  Sender: FDA-Public Use
  Company Number: US-PFIZER INC-2019404041

PATIENT
  Age: 66 Year
  Sex: Female
  Weight: 81.65 kg

DRUGS (27)
  1. XELJANZ [Suspect]
     Active Substance: TOFACITINIB CITRATE
     Indication: Rheumatoid arthritis
     Dosage: 5 MG, 1X/DAY
     Dates: start: 201809
  2. XELJANZ [Suspect]
     Active Substance: TOFACITINIB CITRATE
     Dosage: 5 MG, 2X/DAY
  3. 3-(ALPHA-ACETONYLBENZYL)-4-HYDROXYCOUMARIN [Concomitant]
     Indication: Glaucoma
     Dosage: 0.1 OR 0.2, EYE DROPS, IN RIGHT EYE, TWICE A DAY
  4. ADDERALL [Concomitant]
     Active Substance: AMPHETAMINE ASPARTATE\AMPHETAMINE SULFATE\DEXTROAMPHETAMINE SACCHARATE\DEXTROAMPHETAMINE SULFATE
     Dosage: 20 MG, 2 TO 3 TIMES A DAY
  5. ARAVA [Concomitant]
     Active Substance: LEFLUNOMIDE
     Indication: Rheumatoid arthritis
     Dosage: 20 MG (AT NIGHT)
  6. ARIBA [Concomitant]
     Dosage: UNK
  7. ASPIRIN [Concomitant]
     Active Substance: ASPIRIN
     Dosage: 81 MG, DAILY (EVERY MORNING)
  8. A-RET HC [Concomitant]
     Dosage: UNK, 2X/DAY (ONE TABLET, TWICE A DAY)
  9. CYMBALTA [Concomitant]
     Active Substance: DULOXETINE HYDROCHLORIDE
     Dosage: 60 MG, 2X/DAY
  10. D-MANNOSE [Concomitant]
     Dosage: 2000 MG EVERY MORNING
  11. ELIQUIS [Concomitant]
     Active Substance: APIXABAN
     Dosage: 2.5 MG
  12. ESTRADIOL [Concomitant]
     Active Substance: ESTRADIOL
     Dosage: EVERY 72 HOURS 1 G TO VAGINA
     Route: 067
  13. EVENITY [Concomitant]
     Active Substance: ROMOSOZUMAB-AQQG
     Dosage: SHOTS EVERY MONTH
  14. FOLIC ACID [Concomitant]
     Active Substance: FOLIC ACID
     Dosage: 1 MG, 2X/DAY
  15. GABAPENTIN [Concomitant]
     Active Substance: GABAPENTIN
     Dosage: 600 MG (TWICE A DAY, OR 3 OR 4 TIMES A DAY)
  16. HYDROCHLOROTHIAZIDE [Concomitant]
     Active Substance: HYDROCHLOROTHIAZIDE
     Dosage: 12.5, 1X/DAY
  17. LACOSAMIDE [Concomitant]
     Active Substance: LACOSAMIDE
     Dosage: UNK
  18. METHENAMINE HIPPURATE [Concomitant]
     Active Substance: METHENAMINE HIPPURATE
     Dosage: 1 G, 2X/DAY
  19. MINOXIDIL [Concomitant]
     Active Substance: MINOXIDIL
     Indication: Alopecia
     Dosage: 0.51 % (SOLUTION DROPS TO SCALP)
  20. PEPCID AC [Concomitant]
     Active Substance: FAMOTIDINE
     Dosage: 40 MG, 2X/DAY
  21. DIETARY SUPPLEMENT\PROBIOTICS [Concomitant]
     Active Substance: DIETARY SUPPLEMENT\PROBIOTICS
     Dosage: UNK UNK, DAILY (50 BILLION OR, WHATEVER, EVERY MORNING)
  22. RESTASIS [Concomitant]
     Active Substance: CYCLOSPORINE
     Indication: Sjogren^s syndrome
     Dosage: 0.5 %, 2X/DAY (IN BOTH EYES, TWICE A DAY)
  23. TOPROL XL [Concomitant]
     Active Substance: METOPROLOL SUCCINATE
     Dosage: 100 MG, 1X/DAY
  24. TRAMADOL [Concomitant]
     Active Substance: TRAMADOL
     Dosage: 50 MG WHEN SHE CAN, WHEN HER LUNGS AREN^T ACTING UP
  25. VALSARTAN [Concomitant]
     Active Substance: VALSARTAN
     Dosage: 320 MG, 1X/DAY
  26. VITAMIN D NOS [Concomitant]
     Active Substance: VITAMIN D NOS
     Dosage: 2000, ONCE A DAY
  27. ZETIA [Concomitant]
     Active Substance: EZETIMIBE
     Indication: Blood cholesterol
     Dosage: 100 MG (EVERY NIGHT)

REACTIONS (9)
  - Pulmonary embolism [Unknown]
  - Pulmonary thrombosis [Unknown]
  - Drug effect less than expected [Unknown]
  - Illness [Unknown]
  - Urinary tract infection [Recovered/Resolved]
  - Hypersensitivity [Unknown]
  - Weight increased [Unknown]
  - Arthralgia [Not Recovered/Not Resolved]
  - Pain in extremity [Not Recovered/Not Resolved]

NARRATIVE: CASE EVENT DATE: 20220411
